FAERS Safety Report 10260608 (Version 1)
Quarter: 2014Q2

REPORT INFORMATION
  Report Type: Spontaneous
  Country: US (occurrence: US)
  Receive Date: 20140626
  Receipt Date: 20140626
  Transmission Date: 20141212
  Serious: Yes (Hospitalization)
  Sender: FDA-Public Use
  Company Number: US-ROCHE-1424792

PATIENT
  Age: 62 Year
  Sex: Female

DRUGS (2)
  1. XELODA [Suspect]
     Indication: COLORECTAL CANCER
     Route: 065
  2. URIDINE TRIACETATE [Concomitant]

REACTIONS (7)
  - Diarrhoea [Unknown]
  - Frequent bowel movements [Unknown]
  - Weight decreased [Unknown]
  - Mucosal inflammation [Unknown]
  - Jaundice [Unknown]
  - Liver function test abnormal [Unknown]
  - Colitis [Unknown]
